FAERS Safety Report 23982550 (Version 1)
Quarter: 2024Q2

REPORT INFORMATION
  Report Type: Spontaneous
  Country: IT (occurrence: IT)
  Receive Date: 20240617
  Receipt Date: 20240617
  Transmission Date: 20240716
  Serious: Yes (Death, Life-Threatening, Hospitalization)
  Sender: FDA-Public Use
  Company Number: IT-MLMSERVICE-20240611-PI089806-00119-5

PATIENT
  Age: 31 Year
  Sex: Male

DRUGS (8)
  1. MORPHINE SULFATE [Suspect]
     Active Substance: MORPHINE SULFATE
     Indication: Product used for unknown indication
     Dosage: UNK
     Route: 065
  2. MIDAZOLAM [Suspect]
     Active Substance: MIDAZOLAM
     Indication: Product used for unknown indication
     Dosage: UNK
     Route: 065
  3. CLONAZEPAM [Suspect]
     Active Substance: CLONAZEPAM
     Indication: Product used for unknown indication
     Dosage: UNK
     Route: 065
  4. TILIDINE [Suspect]
     Active Substance: TILIDINE
     Indication: Product used for unknown indication
     Dosage: UNK
     Route: 065
  5. SUFENTANIL [Suspect]
     Active Substance: SUFENTANIL
     Indication: Product used for unknown indication
     Dosage: UNK
     Route: 065
  6. METHADONE [Suspect]
     Active Substance: METHADONE HYDROCHLORIDE
     Indication: Product used for unknown indication
     Dosage: UNK
     Route: 065
  7. DIAZEPAM [Suspect]
     Active Substance: DIAZEPAM
     Indication: Product used for unknown indication
     Dosage: UNK
     Route: 065
  8. LIDOCAINE [Concomitant]
     Active Substance: LIDOCAINE
     Indication: Product used for unknown indication
     Dosage: UNK
     Route: 065

REACTIONS (21)
  - Cardiomegaly [Fatal]
  - Brain injury [Fatal]
  - Pulmonary alveolar haemorrhage [Fatal]
  - Cerebral haemorrhage [Fatal]
  - Loss of consciousness [Fatal]
  - Hepatomegaly [Fatal]
  - Depressed level of consciousness [Fatal]
  - Brain hypoxia [Fatal]
  - Emphysema [Fatal]
  - Encephalomalacia [Fatal]
  - Pulmonary congestion [Fatal]
  - Multiple organ dysfunction syndrome [Fatal]
  - Cardiac failure [Fatal]
  - Cerebral ischaemia [Fatal]
  - Brain oedema [Fatal]
  - Lung hyperinflation [Fatal]
  - Pulmonary oedema [Fatal]
  - Brain herniation [Fatal]
  - Toxicity to various agents [Fatal]
  - Pancreatic enzymes increased [Fatal]
  - Kidney congestion [Fatal]
